FAERS Safety Report 6891576-3 (Version None)
Quarter: 2010Q3

REPORT INFORMATION
  Report Type: 
  Country: None (occurrence: None)
  Receive Date: 20100731
  Receipt Date: 20070829
  Transmission Date: 20110219
  Serious: No
  Sender: FDA-Public Use
  Company Number: US-PFIZER INC-2007072914

PATIENT
  Sex: Male
  Weight: 119.75 kg

DRUGS (5)
  1. GABAPENTIN [Suspect]
     Indication: PAIN
     Dates: start: 20070101
  2. LASIX [Concomitant]
  3. POTASSIUM [Concomitant]
  4. ATENOLOL [Concomitant]
  5. LISINOPRIL [Concomitant]

REACTIONS (1)
  - DRUG INEFFECTIVE [None]
